FAERS Safety Report 17569836 (Version 2)
Quarter: 2020Q2

REPORT INFORMATION
  Report Type: Spontaneous
  Country: US (occurrence: US)
  Receive Date: 20200323
  Receipt Date: 20200604
  Transmission Date: 20200713
  Serious: No
  Sender: FDA-Public Use
  Company Number: US-ELI_LILLY_AND_COMPANY-US202003002629

PATIENT
  Age: 32 Year
  Sex: Female

DRUGS (5)
  1. JANUVIA [Concomitant]
     Active Substance: SITAGLIPTIN PHOSPHATE
     Indication: TYPE 2 DIABETES MELLITUS
  2. METFORMIN [Suspect]
     Active Substance: METFORMIN HYDROCHLORIDE
     Indication: TYPE 2 DIABETES MELLITUS
     Dosage: 750 MG, BID
     Route: 065
  3. TRULICITY [Suspect]
     Active Substance: DULAGLUTIDE
     Dosage: 1.5 MG, UNKNOWN
     Route: 058
     Dates: start: 202001, end: 202005
  4. GLIPIZIDE. [Suspect]
     Active Substance: GLIPIZIDE
     Indication: TYPE 2 DIABETES MELLITUS
     Dosage: 10 MG, BID
     Route: 065
  5. TRULICITY [Suspect]
     Active Substance: DULAGLUTIDE
     Indication: TYPE 2 DIABETES MELLITUS
     Dosage: 1.5 MG, UNKNOWN
     Route: 058
     Dates: start: 2018

REACTIONS (18)
  - Stress [Unknown]
  - Glycosylated haemoglobin increased [Recovering/Resolving]
  - Injection site pain [Recovered/Resolved]
  - Anxiety [Recovering/Resolving]
  - Blood glucose increased [Unknown]
  - Vomiting [Unknown]
  - Injection site haemorrhage [Unknown]
  - Injection site bruising [Unknown]
  - Head discomfort [Recovered/Resolved]
  - Fatigue [Unknown]
  - Diarrhoea [Unknown]
  - Headache [Recovering/Resolving]
  - Musculoskeletal discomfort [Recovered/Resolved]
  - Constipation [Recovering/Resolving]
  - Injection site rash [Recovered/Resolved]
  - Weight decreased [Recovering/Resolving]
  - Abdominal distension [Recovering/Resolving]
  - Accidental underdose [Unknown]

NARRATIVE: CASE EVENT DATE: 2018
